FAERS Safety Report 8872027 (Version 1)
Quarter: 2012Q4

REPORT INFORMATION
  Report Type: Spontaneous
  Country: US (occurrence: None)
  Receive Date: 20121026
  Receipt Date: 20121026
  Transmission Date: 20130627
  Serious: No
  Sender: FDA-Public Use
  Company Number: None

PATIENT
  Age: 84 Year
  Sex: Male
  Weight: 77.3 kg

DRUGS (1)
  1. BRIMONIDINE [Suspect]
     Dosage: 1 DROPS BID EYE
     Route: 047
     Dates: start: 20121004, end: 20121011

REACTIONS (3)
  - Conjunctivitis allergic [None]
  - Pruritus [None]
  - Erythema [None]
